FAERS Safety Report 12424791 (Version 13)
Quarter: 2017Q1

REPORT INFORMATION
  Report Type: Report from Study
  Country: US (occurrence: US)
  Receive Date: 20160601
  Receipt Date: 20170306
  Transmission Date: 20170428
  Serious: Yes (Hospitalization, Other)
  Sender: FDA-Public Use
  Company Number: US-BAYER-2016-094207

PATIENT
  Age: 74 Year
  Sex: Female
  Weight: 77.1 kg

DRUGS (8)
  1. ADEMPAS [Suspect]
     Active Substance: RIOCIGUAT
     Indication: PULMONARY HYPERTENSION
     Dosage: 2 MG, TID
     Route: 048
  2. SPIRONOLACTONE. [Suspect]
     Active Substance: SPIRONOLACTONE
     Dosage: 25 MG, QD
     Dates: end: 2017
  3. OPSUMIT [Concomitant]
     Active Substance: MACITENTAN
     Dosage: UNK
  4. ADEMPAS [Suspect]
     Active Substance: RIOCIGUAT
     Indication: PULMONARY HYPERTENSION
     Dosage: 2.5 MG, TID
     Route: 048
  5. ADEMPAS [Suspect]
     Active Substance: RIOCIGUAT
     Indication: PULMONARY HYPERTENSION
     Dosage: UNK
     Dates: start: 20160422
  6. ADEMPAS [Suspect]
     Active Substance: RIOCIGUAT
     Indication: PULMONARY HYPERTENSION
     Dosage: 1 MG, TID
  7. ADEMPAS [Suspect]
     Active Substance: RIOCIGUAT
     Indication: PULMONARY HYPERTENSION
     Dosage: 0.5 MG, TID
  8. XARELTO [Concomitant]
     Active Substance: RIVAROXABAN
     Dosage: UNK

REACTIONS (42)
  - Malaise [Unknown]
  - Dizziness [Recovered/Resolved]
  - Drug ineffective [Unknown]
  - Asthenia [Recovered/Resolved]
  - Wound secretion [Unknown]
  - Vomiting [Unknown]
  - Muscle spasms [Recovered/Resolved]
  - Memory impairment [None]
  - Flatulence [Unknown]
  - Peripheral swelling [Recovered/Resolved]
  - Visual impairment [None]
  - Nasopharyngitis [Not Recovered/Not Resolved]
  - Oropharyngeal pain [Not Recovered/Not Resolved]
  - Vision blurred [Unknown]
  - Confusional state [None]
  - Oesophageal pain [Unknown]
  - Product availability issue [None]
  - Peripheral swelling [Unknown]
  - Chest pain [Recovered/Resolved]
  - Nasopharyngitis [Unknown]
  - Chest pain [Unknown]
  - Cardiac failure [Unknown]
  - Cardiac failure congestive [Unknown]
  - Wound infection staphylococcal [None]
  - Abasia [None]
  - Back pain [Unknown]
  - Sinus disorder [Unknown]
  - Auditory disorder [None]
  - Dyspnoea [Unknown]
  - Fatigue [Recovered/Resolved]
  - Pain in extremity [Unknown]
  - Dizziness [Unknown]
  - Abnormal weight gain [Unknown]
  - Joint swelling [Not Recovered/Not Resolved]
  - Limb injury [Recovered/Resolved]
  - Dyspepsia [Unknown]
  - Oedema peripheral [Unknown]
  - Gastrooesophageal reflux disease [Unknown]
  - Headache [Unknown]
  - Epistaxis [Unknown]
  - Cough [Unknown]
  - Oxygen saturation decreased [None]

NARRATIVE: CASE EVENT DATE: 2016
